FAERS Safety Report 10418431 (Version 5)
Quarter: 2021Q2

REPORT INFORMATION
  Report Type: Other
  Country: AU (occurrence: AU)
  Receive Date: 20140829
  Receipt Date: 20210601
  Transmission Date: 20210716
  Serious: Yes (Death)
  Sender: FDA-Public Use
  Company Number: AU-ROCHE-1455797

PATIENT
  Age: 68 Year
  Sex: Male

DRUGS (2)
  1. CAPECITABINE. [Suspect]
     Active Substance: CAPECITABINE
     Indication: NEUROENDOCRINE TUMOUR
     Dosage: FOR 4 CYCLES
     Route: 048
  2. TEMOZOLOMIDE. [Suspect]
     Active Substance: TEMOZOLOMIDE
     Indication: NEUROENDOCRINE TUMOUR
     Dosage: THE LAST 5 DAYS OF EACH 14?DAY CAPECITABINE PERIOD (4 CYCLE COURSE)
     Route: 048

REACTIONS (1)
  - Myelodysplastic syndrome [Fatal]
